FAERS Safety Report 15376023 (Version 2)
Quarter: 2018Q4

REPORT INFORMATION
  Report Type: Spontaneous
  Country: US (occurrence: US)
  Receive Date: 20180912
  Receipt Date: 20181022
  Transmission Date: 20190204
  Serious: Yes (Other)
  Sender: FDA-Public Use
  Company Number: US-TEVA-2018-US-951916

PATIENT
  Age: 67 Year
  Sex: Female

DRUGS (2)
  1. NOVOCAIN [Concomitant]
     Active Substance: PROCAINE HYDROCHLORIDE
     Route: 065
  2. FLUOCINONIDE. [Suspect]
     Active Substance: FLUOCINONIDE
     Indication: RASH
     Route: 065
     Dates: start: 201808

REACTIONS (6)
  - Muscle spasms [Unknown]
  - Haematochezia [Unknown]
  - Abdominal discomfort [Unknown]
  - Diarrhoea [Unknown]
  - Nausea [Unknown]
  - Abdominal distension [Unknown]

NARRATIVE: CASE EVENT DATE: 2018
